FAERS Safety Report 5721757-3 (Version None)
Quarter: 2008Q2

REPORT INFORMATION
  Report Type: 
  Country: None (occurrence: None)
  Receive Date: 20080429
  Receipt Date: 20070423
  Transmission Date: 20081010
  Serious: No
  Sender: FDA-Public Use
  Company Number: US-ASTRAZENECA-2007UW07950

PATIENT
  Age: 68 Year
  Sex: Female
  Weight: 59 kg

DRUGS (7)
  1. NEXIUM [Suspect]
     Indication: DYSPHONIA
     Route: 048
     Dates: start: 20021201, end: 20060901
  2. NEXIUM [Suspect]
     Indication: CHEST PAIN
     Route: 048
     Dates: start: 20021201, end: 20060901
  3. NEXIUM [Suspect]
     Indication: COUGH
     Route: 048
     Dates: start: 20021201, end: 20060901
  4. NEXIUM [Suspect]
     Route: 048
     Dates: start: 20060901, end: 20070409
  5. NEXIUM [Suspect]
     Route: 048
     Dates: start: 20060901, end: 20070409
  6. NEXIUM [Suspect]
     Route: 048
     Dates: start: 20060901, end: 20070409
  7. PREMARIN [Concomitant]

REACTIONS (6)
  - ABDOMINAL DISTENSION [None]
  - BACK PAIN [None]
  - CHEST PAIN [None]
  - FATIGUE [None]
  - FLATULENCE [None]
  - PAIN IN EXTREMITY [None]
